FAERS Safety Report 15331462 (Version 1)
Quarter: 2018Q3

REPORT INFORMATION
  Report Type: Spontaneous
  Country: FI (occurrence: FI)
  Receive Date: 20180829
  Receipt Date: 20180829
  Transmission Date: 20181010
  Serious: Yes (Other)
  Sender: FDA-Public Use
  Company Number: FI-DSJP-DSE-2018-137910

PATIENT

DRUGS (2)
  1. NEUROTOL                           /00052501/ [Concomitant]
     Active Substance: CARBAMAZEPINE
     Indication: EPILEPSY
  2. LIXIANA [Suspect]
     Active Substance: EDOXABAN TOSYLATE
     Indication: PRODUCT USED FOR UNKNOWN INDICATION
     Dosage: 60 MG, QD
     Route: 048

REACTIONS (2)
  - Epilepsy [Recovered/Resolved]
  - Muscle twitching [None]
